APPROVED DRUG PRODUCT: INTAL
Active Ingredient: CROMOLYN SODIUM
Strength: 10MG/ML **Federal Register determination that product was not discontinued or withdrawn for safety or effectiveness reasons**
Dosage Form/Route: SOLUTION;INHALATION
Application: N018596 | Product #001
Applicant: KING PHARMACEUTICALS LLC
Approved: May 28, 1982 | RLD: Yes | RS: No | Type: DISCN